FAERS Safety Report 6454339-9 (Version None)
Quarter: 2009Q4

REPORT INFORMATION
  Report Type: 
  Country: None (occurrence: None)
  Receive Date: 20091124
  Receipt Date: 20091003
  Transmission Date: 20100525
  Serious: Yes (Hospitalization)
  Sender: FDA-Public Use
  Company Number: BE-SANOFI-AVENTIS-200921789GDDC

PATIENT
  Age: 62 Year
  Sex: Female
  Weight: 64.5 kg

DRUGS (13)
  1. BLINDED THERAPY [Suspect]
     Dosage: DOSE UNIT: 6 MG/KG
     Route: 042
     Dates: start: 20090924, end: 20090924
  2. DOCETAXEL [Suspect]
     Dosage: DOSE UNIT: 75 MG/M**2
     Route: 042
     Dates: start: 20090924, end: 20090924
  3. CORTICOSTEROIDS [Concomitant]
  4. ASPIRIN [Concomitant]
     Route: 048
  5. ELTHYRONE [Concomitant]
     Route: 048
     Dates: start: 20080930
  6. UNKNOWN DRUG [Concomitant]
  7. REDOMEX [Concomitant]
     Route: 048
  8. SERENASE ^JANSSEN^ [Concomitant]
     Route: 048
     Dates: start: 20080930
  9. STILNOCT [Concomitant]
     Dates: start: 20080930
  10. DURAGESIC-100 [Concomitant]
     Route: 062
     Dates: start: 20090825
  11. DAFALGAN [Concomitant]
     Route: 048
  12. IBUPROFEN [Concomitant]
     Route: 048
     Dates: start: 20090925
  13. LORAZEPAM [Concomitant]
     Route: 060

REACTIONS (1)
  - HAEMOPTYSIS [None]
